FAERS Safety Report 8910619 (Version 1)
Quarter: 2012Q4

REPORT INFORMATION
  Report Type: Spontaneous
  Country: US (occurrence: None)
  Receive Date: 20121115
  Receipt Date: 20121115
  Transmission Date: 20130627
  Serious: Yes (Life-Threatening, Hospitalization, Other)
  Sender: FDA-Public Use
  Company Number: None

PATIENT
  Age: 84 Year
  Sex: Female
  Weight: 68.2 kg

DRUGS (1)
  1. KENALOG [Suspect]
     Indication: BACK PAIN
     Dosage: Kenalog40 from BristolMyersSquibb one shot 8/31/2011 Epidural
     Route: 008
     Dates: start: 20110831

REACTIONS (6)
  - Abasia [None]
  - Aspergillosis [None]
  - Spinal cord infection [None]
  - Alopecia [None]
  - Headache [None]
  - Urinary incontinence [None]
